FAERS Safety Report 17805470 (Version 4)
Quarter: 2022Q1

REPORT INFORMATION
  Report Type: Report from Study
  Country: CO (occurrence: CO)
  Receive Date: 20200520
  Receipt Date: 20220317
  Transmission Date: 20220423
  Serious: Yes (Other)
  Sender: FDA-Public Use
  Company Number: CO-ABBVIE-20K-036-3411552-00

PATIENT
  Age: 64 Year
  Sex: Female

DRUGS (4)
  1. HUMIRA [Suspect]
     Active Substance: ADALIMUMAB
     Indication: Rheumatoid arthritis
     Route: 058
     Dates: start: 20180914, end: 20200326
  2. HUMIRA [Suspect]
     Active Substance: ADALIMUMAB
     Route: 058
     Dates: end: 20211020
  3. HUMIRA [Suspect]
     Active Substance: ADALIMUMAB
     Route: 058
     Dates: start: 20211124, end: 20220220
  4. PALIPERIDONE [Concomitant]
     Active Substance: PALIPERIDONE
     Indication: Osteoporosis

REACTIONS (8)
  - Hip arthroplasty [Unknown]
  - Arthropathy [Recovering/Resolving]
  - Arthralgia [Recovering/Resolving]
  - Impaired quality of life [Unknown]
  - Tachypnoea [Recovered/Resolved]
  - Suffocation feeling [Recovered/Resolved]
  - Arthralgia [Not Recovered/Not Resolved]
  - Musculoskeletal discomfort [Not Recovered/Not Resolved]

NARRATIVE: CASE EVENT DATE: 20200501
